FAERS Safety Report 8973965 (Version 1)
Quarter: 2012Q4

REPORT INFORMATION
  Report Type: 
  Country: US (occurrence: US)
  Receive Date: 20121218
  Receipt Date: 20121218
  Transmission Date: 20130627
  Serious: Yes (Life-Threatening, Other)
  Sender: FDA-Public Use
  Company Number: US-BRISTOL-MYERS SQUIBB COMPANY-16393225

PATIENT
  Age: 31 Year
  Sex: Male

DRUGS (4)
  1. ABILIFY [Suspect]
     Indication: DEPRESSION
     Dosage: received,2-3 years ago
  2. ABILIFY [Suspect]
     Indication: BIPOLAR DISORDER
     Dosage: received,2-3 years ago
  3. ABILIFY [Suspect]
     Indication: PSYCHOMOTOR HYPERACTIVITY
     Dosage: received,2-3 years ago
  4. SEROQUEL [Concomitant]

REACTIONS (1)
  - Suicidal ideation [Recovered/Resolved]
